FAERS Safety Report 15656740 (Version 2)
Quarter: 2019Q4

REPORT INFORMATION
  Report Type: Spontaneous
  Country: PT (occurrence: PT)
  Receive Date: 20181126
  Receipt Date: 20191024
  Transmission Date: 20200122
  Serious: Yes (Other)
  Sender: FDA-Public Use
  Company Number: PT-FRESENIUS KABI-FK201811930

PATIENT
  Age: 68 Year
  Sex: Male

DRUGS (3)
  1. CYPROTERONE ACETATE [Concomitant]
     Active Substance: CYPROTERONE ACETATE
     Indication: PROSTATE CANCER METASTATIC
     Route: 065
  2. TRIPTORELIN [Concomitant]
     Active Substance: TRIPTORELIN
     Indication: PROSTATE CANCER METASTATIC
     Route: 065
  3. ZOLEDRONIC ACID (MANUFACTURER UNKNOWN) [Suspect]
     Active Substance: ZOLEDRONIC ACID
     Indication: PROSTATE CANCER METASTATIC
     Dosage: 4MG; 1 INTRAVENOUS ADMINISTRATION FOR 15 MINUTES, EVERY 4 WEEKS
     Route: 042

REACTIONS (2)
  - Fanconi syndrome [Recovering/Resolving]
  - Renal tubular necrosis [Recovering/Resolving]
